FAERS Safety Report 5095689-0 (Version None)
Quarter: 2006Q3

REPORT INFORMATION
  Report Type: 
  Country: None (occurrence: None)
  Receive Date: 20060731
  Receipt Date: 20060426
  Transmission Date: 20061208
  Serious: No
  Sender: FDA-Public Use
  Company Number: 2006PV012779

PATIENT
  Age: 42 Year
  Sex: Female

DRUGS (7)
  1. BYETTA [Suspect]
     Indication: DIABETES MELLITUS NON-INSULIN-DEPENDENT
     Dosage: BID; SC
     Route: 058
     Dates: start: 20050601, end: 20050601
  2. METFORMIN HCL [Concomitant]
  3. TRICOR [Concomitant]
  4. PAXIL [Concomitant]
  5. XANAX [Concomitant]
  6. SEROQUEL [Concomitant]
  7. DEPAKOT [Concomitant]

REACTIONS (6)
  - ABDOMINAL DISTENSION [None]
  - BLOOD GLUCOSE DECREASED [None]
  - COLD SWEAT [None]
  - DIARRHOEA [None]
  - HYPERHIDROSIS [None]
  - NAUSEA [None]
